FAERS Safety Report 6433012-7 (Version None)
Quarter: 2009Q4

REPORT INFORMATION
  Report Type: 
  Country: None (occurrence: None)
  Receive Date: 20091109
  Receipt Date: 20091028
  Transmission Date: 20100525
  Serious: Yes (Hospitalization, Other)
  Sender: FDA-Public Use
  Company Number: US-ELI_LILLY_AND_COMPANY-US200910003012

PATIENT
  Sex: Female

DRUGS (13)
  1. FORTEO [Suspect]
     Indication: OSTEOPOROSIS
     Dates: start: 20080720, end: 20080901
  2. CALCIUM WITH VITAMIN D [Concomitant]
  3. RESTORIL [Concomitant]
     Dosage: 30 MG, AS NEEDED
  4. ROXICODONE [Concomitant]
     Dosage: 5 MG, AS NEEDED
  5. AMBIEN CR [Concomitant]
     Dosage: 12.5 MG, UNK
  6. BIOTENE [Concomitant]
  7. COMPAZINE [Concomitant]
     Dosage: 5 MG, 3/D
  8. NEXIUM [Concomitant]
     Dosage: 20 MG, DAILY (1/D)
  9. COUMADIN [Concomitant]
     Dosage: 1 MG, UNK
  10. EMEND [Concomitant]
  11. SENOKOT [Concomitant]
     Dosage: 8.6 MG, UNK
  12. IRON [Concomitant]
  13. SONATA [Concomitant]
     Dosage: 10 MG, UNK

REACTIONS (3)
  - COLON ADENOMA [None]
  - COLON CANCER STAGE III [None]
  - PLATELET COUNT DECREASED [None]
